FAERS Safety Report 7591973-7 (Version None)
Quarter: 2011Q3

REPORT INFORMATION
  Report Type: 
  Country: None (occurrence: None)
  Receive Date: 20110706
  Receipt Date: 20110628
  Transmission Date: 20111222
  Serious: Yes (Life-Threatening, Hospitalization)
  Sender: FDA-Public Use
  Company Number: IT-SANOFI-AVENTIS-200917350GDDC

PATIENT
  Age: 41 Year
  Sex: Male
  Weight: 84 kg

DRUGS (14)
  1. IMIPENEM AND CILASTATIN SODIUM [Concomitant]
  2. FLUOROURACIL [Suspect]
     Dosage: DOSE UNIT: 2800 MG/M**2
     Route: 042
     Dates: start: 20090721, end: 20090721
  3. LEUCOVORIN CALCIUM [Suspect]
     Route: 042
     Dates: start: 20090707, end: 20090707
  4. LONGASTATINA [Concomitant]
     Dates: start: 20090722, end: 20090802
  5. AFLIBERCEPT [Suspect]
     Dosage: DOSE UNIT: 4 MG/KG
     Route: 042
     Dates: start: 20090721, end: 20090721
  6. OXALIPLATIN [Suspect]
     Dosage: DOSE UNIT: 85 MG/M**2
     Route: 042
     Dates: start: 20090721, end: 20090721
  7. LEUCOVORIN CALCIUM [Suspect]
     Dosage: DOSE UNIT: 175 MG/M**2
     Route: 042
     Dates: start: 20090721, end: 20090721
  8. FLUOROURACIL [Suspect]
     Dosage: DOSE UNIT: 2800 MG/M**2
     Route: 042
     Dates: start: 20090707, end: 20090707
  9. PAROXETINE HCL [Concomitant]
     Dosage: DOSE AS USED: UNK
  10. METRONIDAZOLE [Concomitant]
     Dates: end: 20090801
  11. ZANTAC [Concomitant]
     Dates: end: 20090726
  12. OXALIPLATIN [Suspect]
     Dosage: DOSE UNIT: 85 MG/M**2
     Route: 042
     Dates: start: 20090707, end: 20090707
  13. DIFLUCAN [Concomitant]
     Dates: end: 20090729
  14. AFLIBERCEPT [Suspect]
     Dosage: DOSE UNIT: 4 MG/KG
     Route: 042
     Dates: start: 20090707, end: 20090707

REACTIONS (2)
  - ANASTOMOTIC LEAK [None]
  - LEUKOPENIA [None]
